FAERS Safety Report 8528243 (Version 4)
Quarter: 2013Q4

REPORT INFORMATION
  Report Type: Spontaneous
  Country: FI (occurrence: FI)
  Receive Date: 20120424
  Receipt Date: 20131125
  Transmission Date: 20140711
  Serious: Yes (Disabling)
  Sender: FDA-Public Use
  Company Number: FI-ROCHE-744270

PATIENT
  Age: 60 Year
  Sex: Female

DRUGS (3)
  1. MABTHERA [Suspect]
     Indication: LUPUS VASCULITIS
     Dosage: FREQUENCY: TWO INFUSIONS
     Route: 042
     Dates: start: 20091111, end: 20091229
  2. CYCLOPHOSPHAMIDE [Suspect]
     Indication: LUPUS VASCULITIS
     Dosage: SIX 1000 MG CYCLES
     Route: 042
     Dates: start: 20090526, end: 20091021
  3. CORTISONE [Concomitant]
     Indication: LUPUS VASCULITIS

REACTIONS (3)
  - Progressive multifocal leukoencephalopathy [Not Recovered/Not Resolved]
  - Visual impairment [Not Recovered/Not Resolved]
  - Mobility decreased [Not Recovered/Not Resolved]
